FAERS Safety Report 12154921 (Version 1)
Quarter: 2016Q1

REPORT INFORMATION
  Report Type: Spontaneous
  Country: US (occurrence: US)
  Receive Date: 20160307
  Receipt Date: 20160307
  Transmission Date: 20160526
  Serious: Yes (Death, Other)
  Sender: FDA-Public Use
  Company Number: US-BRISTOL-MYERS SQUIBB COMPANY-BMS-2016-016125

PATIENT
  Sex: Female

DRUGS (1)
  1. OPDIVO [Suspect]
     Active Substance: NIVOLUMAB
     Indication: LARYNGEAL NEOPLASM
     Dosage: 120 MG, Q2WK
     Route: 065
     Dates: start: 20160120

REACTIONS (2)
  - Death [Fatal]
  - Off label use [Unknown]
